FAERS Safety Report 24167438 (Version 5)
Quarter: 2024Q3

REPORT INFORMATION
  Report Type: Spontaneous
  Country: JP (occurrence: JP)
  Receive Date: 20240802
  Receipt Date: 20240911
  Transmission Date: 20241016
  Serious: Yes (Death, Hospitalization)
  Sender: PFIZER
  Company Number: JP-PFIZER INC-PV202400099738

PATIENT
  Age: 8 Year
  Sex: Male
  Weight: 24 kg

DRUGS (24)
  1. NGENLA [Suspect]
     Active Substance: SOMATROGON-GHLA
     Indication: Dwarfism
     Dosage: 16 MG, WEEKLY
     Route: 058
     Dates: start: 202310, end: 202403
  2. NGENLA [Suspect]
     Active Substance: SOMATROGON-GHLA
     Indication: Growth hormone deficiency
  3. CORTRIL [Suspect]
     Active Substance: HYDROCORTISONE
     Indication: Adrenal insufficiency
     Dosage: 1 DF, 1X/DAY, AFTER BREAKFAST
     Route: 051
     Dates: start: 20240311
  4. LEVOTHYROXINE SODIUM [Concomitant]
     Active Substance: LEVOTHYROXINE SODIUM
     Dosage: 60 UG, 1X/DAY, AFTER DINNER (POWDER FOR ENTERAL)
     Dates: start: 20240111
  5. LEVOTHYROXINE SODIUM [Concomitant]
     Active Substance: LEVOTHYROXINE SODIUM
     Dosage: 60 UG, 1X/DAY, AFTER DINNER (POWDER FOR ENTERAL 14 DAYS)
     Dates: start: 20240202
  6. ENEVO [Concomitant]
     Dosage: 250 ML, 4X/DAY, ADMINISTERED OVER 1 HOUR 30 MINUTES
     Dates: start: 20240111
  7. LEVETIRACETAM [Concomitant]
     Active Substance: LEVETIRACETAM
     Dosage: 800 MG/DAY, 2X/DAY, IN THE MORNING AND IN THE EVENING (DRY SYRUP)
     Dates: start: 20240202
  8. LAMICTAL [Concomitant]
     Active Substance: LAMOTRIGINE
     Dosage: 2 TABLETS/DAILY, 2X/DAY, AFTER BREAKFAST AND AFTER DINNER (CRUSHED)
     Dates: start: 20240202
  9. MYSTAN [Concomitant]
     Active Substance: CLOBAZAM
     Dosage: 8 MG, 1X/DAY, AFTER DINNER
     Dates: start: 20240202
  10. FYCOMPA [Concomitant]
     Active Substance: PERAMPANEL
     Dosage: 6 MG, 1X/DAY, AFTER DINNER
     Dates: start: 20240202
  11. BELSOMRA [Concomitant]
     Active Substance: SUVOREXANT
     Dosage: 1 TABKET WAS CRUSHED AND PRESCRIBED AT 7.5MG, 1X/DAY, BEFORE BED
     Dates: start: 20240202
  12. GLYCERIN [Concomitant]
     Active Substance: GLYCERIN
     Dosage: (PRESCRIBED FOR 20 DOSAGE FORM)
     Dates: start: 20240202
  13. TULOBUTEROL [Concomitant]
     Active Substance: TULOBUTEROL
     Dosage: 1 DF (ADHESIVE SKIN PATCH)
     Dates: start: 20240202
  14. MONTELUKAST SODIUM [Concomitant]
     Active Substance: MONTELUKAST\MONTELUKAST SODIUM
     Dosage: 1 DF, 1X/DAY, AFTER DINNER
     Dates: start: 20240202
  15. ALLEGRA [Concomitant]
     Active Substance: FEXOFENADINE HYDROCHLORIDE
     Dosage: 1 TABLET WERE CRUSHED, 2X/DAY, AFTER BREAKFAST AND AFTER DINNER
     Dates: start: 20240202
  16. MOVICOL [Concomitant]
     Active Substance: POLYETHYLENE GLYCOL 3350\POTASSIUM CHLORIDE\SODIUM BICARBONATE\SODIUM CHLORIDE
     Dosage: 1 DF, 1X/DAY, AFTER BREAKFAST
     Dates: start: 20240202
  17. ROZEREM [Concomitant]
     Active Substance: RAMELTEON
     Dosage: 1 TABLET WAS CRUSHED, 1X/DAY, BEFORE BED
     Dates: start: 20240202
  18. CARBOCYSTEINE [Concomitant]
     Active Substance: CARBOCYSTEINE
     Dosage: 1.2 G/DAY, 2X/DAY, AFTER BREAKFAST AND AFTER DINNER
     Dates: start: 20240202
  19. AMBROXOL HYDROCHLORIDE [Concomitant]
     Active Substance: AMBROXOL HYDROCHLORIDE
     Dosage: 1.2G/DAY, 2X/DAY (DRY SYRUP)
     Dates: start: 20240202
  20. MIYA-BM [Concomitant]
     Active Substance: CLOSTRIDIUM BUTYRICUM SPORES STRAIN M-55
     Dosage: 1.5G/DAY, 2X/DAY, AFTER BREAKFAST AND AFTER DINNER
     Dates: start: 20240202
  21. PULMICORT TURBUHALER [Concomitant]
     Active Substance: BUDESONIDE
     Dosage: 1 DF, 2X/DAY, IN THE MORNING AND IN THE EVENING (INHALATION LIQUID)
     Dates: start: 20240202
  22. DIAZEPAM [Concomitant]
     Active Substance: DIAZEPAM
     Dosage: 1 DF (WAS PRESCRIBED FOR 10 TIMES)
     Route: 054
     Dates: start: 20240202
  23. SOLITA T GRANULES NO.3 [Concomitant]
     Dosage: 1 DF, 4X/DAY, UPON WAKING UP, AFTER BREAKFAST, LUNCH AND DINNER
     Dates: start: 20240202
  24. NASONEX [Concomitant]
     Active Substance: MOMETASONE FUROATE
     Dosage: 1 SPRAY FOR BOTH NOSTRILS, 1X/DAY (PRESCRIBED FOR 1 BOTTLE)
     Route: 045
     Dates: start: 20240202

REACTIONS (3)
  - Pneumonia viral [Fatal]
  - Hypoglycaemia [Fatal]
  - Septic shock [Fatal]

NARRATIVE: CASE EVENT DATE: 20240311
